FAERS Safety Report 11561344 (Version 2)
Quarter: 2015Q4

REPORT INFORMATION
  Report Type: Spontaneous
  Country: US (occurrence: US)
  Receive Date: 20150916
  Receipt Date: 20151027
  Transmission Date: 20160304
  Serious: No
  Sender: FDA-Public Use
  Company Number: US-ELI_LILLY_AND_COMPANY-US200810005905

PATIENT
  Sex: Female

DRUGS (1)
  1. FORTEO [Suspect]
     Active Substance: TERIPARATIDE
     Indication: OSTEOPOROSIS
     Dosage: 20 UG, DAILY (1/D)
     Route: 065
     Dates: start: 20081009

REACTIONS (9)
  - Laceration [Not Recovered/Not Resolved]
  - Visual acuity reduced [Recovering/Resolving]
  - Cataract [Recovering/Resolving]
  - Mobility decreased [Not Recovered/Not Resolved]
  - Back disorder [Not Recovered/Not Resolved]
  - Frustration [Not Recovered/Not Resolved]
  - Tendon rupture [Unknown]
  - Hair growth abnormal [Not Recovered/Not Resolved]
  - Nervousness [Unknown]

NARRATIVE: CASE EVENT DATE: 200810
